FAERS Safety Report 6560402-4 (Version None)
Quarter: 2010Q1

REPORT INFORMATION
  Report Type: 
  Country: None (occurrence: None)
  Receive Date: 20100129
  Receipt Date: 20050308
  Transmission Date: 20100710
  Serious: No
  Sender: FDA-Public Use
  Company Number: US-ALLERGAN-200501899

PATIENT
  Age: 35 Year
  Weight: 52.273 kg

DRUGS (2)
  1. BOTOX COSMETIC [Suspect]
     Indication: SKIN WRINKLING
     Dosage: 26UNITS, PRN
     Route: 030
     Dates: start: 20050225
  2. ZITHROMAX [Concomitant]
     Indication: SINUS HEADACHE

REACTIONS (9)
  - ABDOMINAL PAIN UPPER [None]
  - ASTHENIA [None]
  - CHEST PAIN [None]
  - DECREASED APPETITE [None]
  - DIARRHOEA [None]
  - DRY MOUTH [None]
  - INFLUENZA [None]
  - PARAESTHESIA [None]
  - SKIN BURNING SENSATION [None]
